FAERS Safety Report 11534412 (Version 2)
Quarter: 2015Q4

REPORT INFORMATION
  Report Type: Spontaneous
  Country: BR (occurrence: BR)
  Receive Date: 20150922
  Receipt Date: 20151023
  Transmission Date: 20160304
  Serious: Yes (Other)
  Sender: FDA-Public Use
  Company Number: BR-ROCHE-1635641

PATIENT
  Sex: Female
  Weight: 82 kg

DRUGS (4)
  1. LIPITOR [Concomitant]
     Active Substance: ATORVASTATIN CALCIUM
     Route: 065
  2. RIVOTRIL [Suspect]
     Active Substance: CLONAZEPAM
     Indication: ANXIETY
     Dosage: 3 DROPS/MORNING, 3DROPS/AFTERNOON AND 5 DROPS/EVENING
     Route: 065
     Dates: start: 201505
  3. DONAREN [Concomitant]
     Active Substance: TRAZODONE HYDROCHLORIDE
     Indication: ANXIETY
     Route: 065
  4. SIMVASTATIN. [Concomitant]
     Active Substance: SIMVASTATIN

REACTIONS (7)
  - Asphyxia [Unknown]
  - Cough [Unknown]
  - Weight increased [Unknown]
  - Product taste abnormal [Unknown]
  - Nausea [Unknown]
  - Blood cholesterol increased [Unknown]
  - Paraesthesia [Unknown]
